FAERS Safety Report 25484532 (Version 1)
Quarter: 2025Q2

REPORT INFORMATION
  Report Type: Spontaneous
  Country: US (occurrence: None)
  Receive Date: 20250626
  Receipt Date: 20250626
  Transmission Date: 20250716
  Serious: Yes (Life-Threatening, Hospitalization)
  Sender: FDA-CTU
  Company Number: None

PATIENT
  Age: 56 Year
  Sex: Male
  Weight: 65.25 kg

DRUGS (1)
  1. CHLORTHALIDONE [Suspect]
     Active Substance: CHLORTHALIDONE
     Indication: Hypertension
     Dosage: FREQUENCY : DAILY;?
     Route: 048
     Dates: start: 20250107, end: 20250110

REACTIONS (6)
  - Hypokalaemia [None]
  - Hyponatraemia [None]
  - Hypomagnesaemia [None]
  - Brain fog [None]
  - Lethargy [None]
  - Near death experience [None]

NARRATIVE: CASE EVENT DATE: 20250107
